FAERS Safety Report 7534986-3 (Version None)
Quarter: 2011Q2

REPORT INFORMATION
  Report Type: 
  Country: None (occurrence: None)
  Receive Date: 20110609
  Receipt Date: 20081217
  Transmission Date: 20111010
  Serious: Yes (Death, Hospitalization, Other)
  Sender: FDA-Public Use
  Company Number: PHHY2008DE32315

PATIENT
  Sex: Male
  Weight: 85 kg

DRUGS (9)
  1. METFORMIN HCL [Concomitant]
     Dosage: UNK
  2. ALLOPURINOL [Concomitant]
  3. EXJADE [Suspect]
     Dosage: 1000 MG, QD
     Route: 048
     Dates: start: 20070110
  4. RAMIPRIL [Concomitant]
  5. CORTISONE ACETATE [Concomitant]
  6. EXJADE [Suspect]
     Indication: HAEMOSIDEROSIS
     Dosage: 850 MG, QD
     Route: 048
     Dates: start: 20061201, end: 20070109
  7. EXJADE [Suspect]
     Dosage: 2000 MG, QD
     Route: 048
  8. MARCUMAR [Concomitant]
  9. RAMIPRIL [Concomitant]
     Indication: HYPERTENSION
     Dosage: UNK
     Dates: start: 20050101

REACTIONS (3)
  - MULTI-ORGAN FAILURE [None]
  - PNEUMONIA [None]
  - MYELODYSPLASTIC SYNDROME [None]
